FAERS Safety Report 5034916-2 (Version None)
Quarter: 2006Q2

REPORT INFORMATION
  Report Type: 
  Country: None (occurrence: None)
  Receive Date: 20060519
  Receipt Date: 20060425
  Transmission Date: 20061013
  Serious: Yes (Death)
  Sender: FDA-Public Use
  Company Number: 06P-163-0325246-00

PATIENT
  Age: 74 Year
  Sex: Female
  Weight: 61.6892 kg

DRUGS (3)
  1. TRICOR [Suspect]
     Indication: BLOOD TRIGLYCERIDES INCREASED
     Dosage: 145 MG, 1 IN 1 D, PER ORAL
     Route: 048
     Dates: start: 20050401, end: 20051028
  2. ATENOLOL [Concomitant]
  3. CLONIDINE [Concomitant]

REACTIONS (1)
  - DEATH [None]
